FAERS Safety Report 4869837-9 (Version None)
Quarter: 2005Q4

REPORT INFORMATION
  Report Type: 
  Country: None (occurrence: None)
  Receive Date: 20051227
  Receipt Date: 20051220
  Transmission Date: 20060501
  Serious: Yes (Death, Hospitalization, Other)
  Sender: FDA-Public Use
  Company Number: A-US2004-06352

PATIENT
  Age: 45 Year
  Sex: Male

DRUGS (22)
  1. TRACLEER [Suspect]
     Indication: PULMONARY HYPERTENSION
     Dosage: 125 MG, BID, ORAL
     Route: 048
     Dates: start: 20021030, end: 20040505
  2. VIAGRA [Concomitant]
  3. SEPTRA [Concomitant]
  4. DIFLUCAN (FLUCONAZOLE) [Concomitant]
  5. AZITHROMYCIN [Concomitant]
  6. ETHAMBUTOL (ETHAMBUTOL) [Concomitant]
  7. REMERON [Concomitant]
  8. TEMAZEPAM [Concomitant]
  9. KALETRA [Concomitant]
  10. TENOFOVIR [Concomitant]
  11. LASIX [Concomitant]
  12. AMLODIPINE [Concomitant]
  13. METOPROLOL SUCCINATE [Concomitant]
  14. LOTENSIN [Concomitant]
  15. COUMADIN [Concomitant]
  16. PRILOSEC [Concomitant]
  17. DOXYCYCLINE [Concomitant]
  18. FLUCONAZOLE [Concomitant]
  19. CEFEPIME (CEFEPIME) [Concomitant]
  20. VANCOMYCIN [Concomitant]
  21. AMPICILLIN [Concomitant]
  22. . [Concomitant]

REACTIONS (37)
  - ALANINE AMINOTRANSFERASE INCREASED [None]
  - ASPARTATE AMINOTRANSFERASE INCREASED [None]
  - BLOOD ALKALINE PHOSPHATASE INCREASED [None]
  - BLOOD BICARBONATE DECREASED [None]
  - BLOOD BILIRUBIN INCREASED [None]
  - BLOOD CHLORIDE INCREASED [None]
  - BLOOD PH INCREASED [None]
  - BLOOD SODIUM DECREASED [None]
  - BRAIN HERNIATION [None]
  - DEPRESSED LEVEL OF CONSCIOUSNESS [None]
  - DIABETES INSIPIDUS [None]
  - DILATATION ATRIAL [None]
  - DISSEMINATED INTRAVASCULAR COAGULATION [None]
  - EMPHYSEMA [None]
  - EMPYEMA [None]
  - FATIGUE [None]
  - HAEMATOCRIT DECREASED [None]
  - HEPATIC CIRRHOSIS [None]
  - HYPERNATRAEMIA [None]
  - INTERNATIONAL NORMALISED RATIO INCREASED [None]
  - ISCHAEMIC CEREBRAL INFARCTION [None]
  - MENINGITIS [None]
  - PCO2 DECREASED [None]
  - PLEOCYTOSIS [None]
  - PNEUMOCYSTIS JIROVECI INFECTION [None]
  - PO2 INCREASED [None]
  - PROTEIN URINE PRESENT [None]
  - PUPIL FIXED [None]
  - RED BLOOD CELLS URINE [None]
  - RENAL FAILURE CHRONIC [None]
  - SOMNOLENCE [None]
  - SUBARACHNOID HAEMORRHAGE [None]
  - SUBDURAL HAEMATOMA [None]
  - UNRESPONSIVE TO PAIN STIMULI [None]
  - VENTRICULAR HYPERTROPHY [None]
  - WHITE BLOOD CELL COUNT DECREASED [None]
  - XANTHOCHROMIA [None]
